FAERS Safety Report 16955642 (Version 2)
Quarter: 2019Q4

REPORT INFORMATION
  Report Type: Spontaneous
  Country: US (occurrence: US)
  Receive Date: 20191024
  Receipt Date: 20191119
  Transmission Date: 20200122
  Serious: No
  Sender: FDA-Public Use
  Company Number: US-PFIZER INC-2019456498

PATIENT
  Age: 64 Year
  Sex: Female
  Weight: 44.45 kg

DRUGS (4)
  1. PERCOCET [Concomitant]
     Active Substance: ACETAMINOPHEN\OXYCODONE HYDROCHLORIDE
     Dosage: UNK
  2. NICOTROL [Suspect]
     Active Substance: NICOTINE
     Dosage: UNK
     Dates: start: 20191021
  3. AMBIEN [Concomitant]
     Active Substance: ZOLPIDEM TARTRATE
     Indication: PANIC ATTACK
     Dosage: 10 MG, AS NEEDED
     Route: 048
  4. DIAZEPAM. [Concomitant]
     Active Substance: DIAZEPAM
     Dosage: 5 MG, UNK

REACTIONS (2)
  - Cough [Unknown]
  - Choking sensation [Unknown]

NARRATIVE: CASE EVENT DATE: 2019
